FAERS Safety Report 4947723-3 (Version None)
Quarter: 2006Q1

REPORT INFORMATION
  Report Type: 
  Country: None (occurrence: None)
  Receive Date: 20060320
  Receipt Date: 20051221
  Transmission Date: 20060701
  Serious: Yes (Hospitalization)
  Sender: FDA-Public Use
  Company Number: JP-GILEAD-2005-0009043

PATIENT
  Sex: Female

DRUGS (11)
  1. HEPSERA [Suspect]
     Indication: HEPATITIS B
     Route: 048
     Dates: start: 20051125
  2. LAMIVUDINE [Suspect]
     Indication: HEPATITIS B
     Route: 048
     Dates: start: 20010701
  3. STRONG NEO-MINOPHAGEN C [Concomitant]
     Dates: start: 20051222, end: 20051228
  4. TEPRENONE [Concomitant]
     Dates: start: 20050307
  5. OMEPRAZOLE [Concomitant]
     Dates: start: 20050426
  6. TACROLIMUS [Concomitant]
     Dates: start: 20050509
  7. TACROLIMUS [Concomitant]
     Dates: start: 20051224, end: 20060105
  8. TACROLIMUS [Concomitant]
     Dates: start: 20060106, end: 20060112
  9. TACROLIMUS [Concomitant]
     Dates: start: 20060113
  10. EBASTINE [Concomitant]
     Dates: start: 20050908
  11. NEO-MINOPHAGEN C [Concomitant]
     Dates: start: 20051126, end: 20051228

REACTIONS (2)
  - DRUG ERUPTION [None]
  - RASH [None]
